FAERS Safety Report 24105776 (Version 5)
Quarter: 2025Q3

REPORT INFORMATION
  Report Type: Spontaneous
  Country: US (occurrence: US)
  Receive Date: 20240717
  Receipt Date: 20250816
  Transmission Date: 20251020
  Serious: Yes (Other)
  Sender: ALEXION PHARMACEUTICALS
  Company Number: 2024A162715

PATIENT
  Sex: Female

DRUGS (1)
  1. BREZTRI [Suspect]
     Active Substance: BUDESONIDE\FORMOTEROL\GLYCOPYRROLATE
     Dosage: 160 MICROGRAM, BID

REACTIONS (5)
  - Macular degeneration [Unknown]
  - Wrong technique in device usage process [Unknown]
  - Device delivery system issue [Unknown]
  - Device use issue [Unknown]
  - Incorrect dose administered by device [Unknown]
